FAERS Safety Report 6491850-9 (Version None)
Quarter: 2009Q4

REPORT INFORMATION
  Report Type: 
  Country: None (occurrence: None)
  Receive Date: 20091125
  Receipt Date: 20090729
  Transmission Date: 20100525
  Serious: Yes (Other)
  Sender: FDA-Public Use
  Company Number: 2009BH012125

PATIENT
  Age: 48 Year
  Sex: Male

DRUGS (15)
  1. DIANEAL [Suspect]
     Indication: PERITONEAL DIALYSIS
     Dosage: 10 L; EVERY DAY; IP
     Route: 033
     Dates: start: 20060303
  2. EXTRANEAL [Suspect]
     Indication: PERITONEAL DIALYSIS
     Dosage: 2 L; EVERY DAY; IP
     Route: 033
     Dates: start: 20060303
  3. ULTRAM [Concomitant]
  4. MINOXIDIL [Concomitant]
  5. INSULIN LISPRO [Concomitant]
  6. LANTUS [Concomitant]
  7. XANAX [Concomitant]
  8. ROCALTROL [Concomitant]
  9. POTASSIUM CHLORIDE [Concomitant]
  10. CEFTAZIDIME [Concomitant]
  11. LISINOPRIL [Concomitant]
  12. METOPROLOL TARTRATE [Concomitant]
  13. NEPHROCAPS [Concomitant]
  14. TUMS E-X [Concomitant]
  15. HUMALOG [Concomitant]

REACTIONS (2)
  - FALSE POSITIVE LABORATORY RESULT [None]
  - PERITONITIS BACTERIAL [None]
